FAERS Safety Report 8475160-6 (Version None)
Quarter: 2012Q2

REPORT INFORMATION
  Report Type: 
  Country: None (occurrence: None)
  Receive Date: 20120628
  Receipt Date: 20120626
  Transmission Date: 20120825
  Serious: Yes (Hospitalization, Other)
  Sender: FDA-Public Use
  Company Number: US-PFIZER INC-2012154466

PATIENT
  Sex: Female

DRUGS (3)
  1. ASPIRIN [Suspect]
     Dosage: UNK
  2. POTASSIUM [Suspect]
     Dosage: UNK
  3. CHANTIX [Suspect]
     Indication: SMOKING CESSATION THERAPY
     Dosage: UNK
     Route: 048
     Dates: end: 20120625

REACTIONS (22)
  - INTERVERTEBRAL DISC PROTRUSION [None]
  - PAIN [None]
  - HEADACHE [None]
  - DEPRESSION [None]
  - OEDEMA PERIPHERAL [None]
  - CONSTIPATION [None]
  - AGITATION [None]
  - APHAGIA [None]
  - INSOMNIA [None]
  - CHOLELITHIASIS [None]
  - DYSPHAGIA [None]
  - SOMNOLENCE [None]
  - PNEUMONIA [None]
  - COUGH [None]
  - FATIGUE [None]
  - NAUSEA [None]
  - ANXIETY [None]
  - OSTEOPOROSIS [None]
  - WEIGHT DECREASED [None]
  - MUSCLE ATROPHY [None]
  - DECREASED APPETITE [None]
  - SWELLING [None]
